FAERS Safety Report 5051967-2 (Version None)
Quarter: 2006Q3

REPORT INFORMATION
  Report Type: 
  Country: None (occurrence: None)
  Receive Date: 20060711
  Receipt Date: 20060615
  Transmission Date: 20061208
  Serious: Yes (Hospitalization, Other)
  Sender: FDA-Public Use
  Company Number: US200601000322

PATIENT
  Age: 31 Year
  Sex: Female
  Weight: 66.2 kg

DRUGS (4)
  1. ZYPREXA [Suspect]
     Dosage: 2.5 MG, AS NEEDED, ORAL; 2.5 MEQ, DAILY (1/D), ORAL; 5 MG, EACH EVENING, ORAL
     Route: 048
     Dates: start: 20020101, end: 20040510
  2. ZYPREXA [Suspect]
     Dosage: 2.5 MG, AS NEEDED, ORAL; 2.5 MEQ, DAILY (1/D), ORAL; 5 MG, EACH EVENING, ORAL
     Route: 048
     Dates: start: 20040510, end: 20041101
  3. ZYPREXA [Suspect]
     Dosage: 2.5 MG, AS NEEDED, ORAL; 2.5 MEQ, DAILY (1/D), ORAL; 5 MG, EACH EVENING, ORAL
     Route: 048
     Dates: start: 20041101
  4. NEXIUM [Concomitant]

REACTIONS (18)
  - ABDOMINAL DISTENSION [None]
  - ANXIETY [None]
  - BLOOD ALBUMIN DECREASED [None]
  - DEHYDRATION [None]
  - GASTRITIS EROSIVE [None]
  - HAEMATOCHEZIA [None]
  - HYPERGLYCAEMIA [None]
  - HYPOPROTEINAEMIA [None]
  - LEUKOCYTOSIS [None]
  - METABOLIC DISORDER [None]
  - OVARIAN CYST [None]
  - PANCREATITIS ACUTE [None]
  - PANCREATITIS CHRONIC [None]
  - PROTEIN URINE PRESENT [None]
  - RED BLOOD CELLS URINE [None]
  - URINE KETONE BODY PRESENT [None]
  - URINE LEUKOCYTE ESTERASE POSITIVE [None]
  - WEIGHT DECREASED [None]
